FAERS Safety Report 15256094 (Version 1)
Quarter: 2018Q3

REPORT INFORMATION
  Report Type: Spontaneous
  Country: US (occurrence: US)
  Receive Date: 20180718
  Receipt Date: 20180718
  Transmission Date: 20181010
  Serious: No
  Sender: FDA-Public Use
  Company Number: None

PATIENT
  Age: 59 Year
  Sex: Female

DRUGS (17)
  1. CALCIUMD [Concomitant]
  2. COUMADIN [Concomitant]
     Active Substance: WARFARIN SODIUM
  3. GABAPENTIN. [Concomitant]
     Active Substance: GABAPENTIN
  4. OCALIVA [Suspect]
     Active Substance: OBETICHOLIC ACID
     Indication: PRIMARY BILIARY CHOLANGITIS
     Route: 048
     Dates: start: 20170228
  5. L?ARGINNE [Concomitant]
  6. VITAMIN A [Concomitant]
     Active Substance: VITAMIN A
  7. PRESERVISION [Concomitant]
     Active Substance: MINERALS\VITAMINS
  8. GLUCOSAMINE [Concomitant]
     Active Substance: GLUCOSAMINE
  9. NAMENDA [Concomitant]
     Active Substance: MEMANTINE HYDROCHLORIDE
  10. COQ10 [Concomitant]
     Active Substance: UBIDECARENONE
  11. PRAVASTATIN. [Concomitant]
     Active Substance: PRAVASTATIN
  12. URDODIOL [Concomitant]
  13. FOLBEE [Suspect]
     Active Substance: CYANOCOBALAMIN\FOLIC ACID\PYRIDOXINE HYDROCHLORIDE
  14. PANTOPRAZOLE [Concomitant]
     Active Substance: PANTOPRAZOLE
  15. PLAVIX [Concomitant]
     Active Substance: CLOPIDOGREL BISULFATE
  16. ZETIA [Concomitant]
     Active Substance: EZETIMIBE
  17. VITAMIN D3 [Concomitant]
     Active Substance: CHOLECALCIFEROL

REACTIONS (1)
  - Pruritus [None]
